FAERS Safety Report 18049184 (Version 2)
Quarter: 2020Q3

REPORT INFORMATION
  Report Type: Report from Study
  Country: US (occurrence: US)
  Receive Date: 20200721
  Receipt Date: 20200731
  Transmission Date: 20201103
  Serious: Yes (Life-Threatening, Other)
  Sender: FDA-Public Use
  Company Number: US-BAYER-2020-133442

PATIENT

DRUGS (1)
  1. ALKA?SELTZER PLUS MAXIMUM STRENGTH DAY COLD AND FLU POWERMAX GELS [Suspect]
     Active Substance: ACETAMINOPHEN\DEXTROMETHORPHAN HYDROBROMIDE\PHENYLEPHRINE HYDROCHLORIDE
     Dosage: UNK

REACTIONS (3)
  - Choking [Unknown]
  - Product use complaint [None]
  - Dyspnoea [None]
